FAERS Safety Report 7990193-1 (Version None)
Quarter: 2011Q4

REPORT INFORMATION
  Report Type: 
  Country: None (occurrence: None)
  Receive Date: 20111219
  Receipt Date: 20111208
  Transmission Date: 20120403
  Serious: Yes (Hospitalization)
  Sender: FDA-Public Use
  Company Number: GB-ASTRAZENECA-2011SE73011

PATIENT
  Age: 18985 Day
  Sex: Male

DRUGS (8)
  1. NICORANDIL [Concomitant]
     Indication: ANGINA PECTORIS
     Route: 048
  2. OMEPRAZOLE [Concomitant]
     Indication: GASTRITIS PROPHYLAXIS
     Route: 048
  3. ACTIT [Concomitant]
     Indication: FLUID REPLACEMENT
     Route: 042
     Dates: start: 20111128, end: 20111128
  4. PLAVIX [Suspect]
     Indication: CORONARY ARTERY DISEASE
     Route: 048
     Dates: start: 20110907, end: 20111127
  5. ASPIRIN [Suspect]
     Indication: CORONARY ARTERY DISEASE
     Route: 048
     Dates: end: 20111127
  6. IMIDAPRIL HYDROCHLORIDE [Concomitant]
     Indication: CARDIOVASCULAR EVENT PROPHYLAXIS
     Route: 048
  7. PITAVASTATIN CALCIUM [Concomitant]
     Indication: HYPERCHOLESTEROLAEMIA
     Route: 048
  8. MEROPENEM HYDRATE [Concomitant]
     Indication: PNEUMONIA
     Route: 042
     Dates: start: 20111128, end: 20111204

REACTIONS (1)
  - BRONCHIAL HAEMORRHAGE [None]
